FAERS Safety Report 5167413-4 (Version None)
Quarter: 2006Q4

REPORT INFORMATION
  Report Type: 
  Country: None (occurrence: None)
  Receive Date: 20061130
  Receipt Date: 20061117
  Transmission Date: 20070319
  Serious: Yes (Death, Hospitalization)
  Sender: FDA-Public Use
  Company Number: 2006107013

PATIENT
  Age: 73 Year
  Sex: Male
  Weight: 96 kg

DRUGS (14)
  1. SUTENT [Suspect]
     Indication: METASTATIC RENAL CELL CARCINOMA
     Dosage: 50 MG (50 MG,1 IN 1 D), ORAL
     Route: 048
     Dates: start: 20060516, end: 20060829
  2. LOSARTAN POTASSIUM [Concomitant]
  3. ZOLEDRONIC ACID [Concomitant]
  4. METHYLPREDNISONE (MEPREDNISONE) [Concomitant]
  5. NYSTATIN [Concomitant]
  6. ENSURE (AMINO ACIDS NOS, MINERALS NOS, VITAMINS NOS) [Concomitant]
  7. PLATSULA (ERGOCALCIFEROL, LIDOCAINE, RETINOL, SULFADIAZINE SILVER) [Concomitant]
  8. VITAMIN A [Concomitant]
  9. LIDOCAINE [Concomitant]
  10. FUROSEMIDE [Concomitant]
  11. DIPHENYLHYDANTOIN SODIUM (PHENYTOIN SODIUM) [Concomitant]
  12. AMPICILLIN SODIUM [Concomitant]
  13. SULBACTAM [Concomitant]
  14. MANNITOL [Concomitant]

REACTIONS (10)
  - APHASIA [None]
  - GRAND MAL CONVULSION [None]
  - HEMIPARESIS [None]
  - HYPOGLYCAEMIA [None]
  - HYPOKALAEMIA [None]
  - HYPONATRAEMIA [None]
  - HYPOTENSION [None]
  - METASTASES TO CENTRAL NERVOUS SYSTEM [None]
  - NEUROLOGICAL SYMPTOM [None]
  - SOMNOLENCE [None]
